FAERS Safety Report 14619695 (Version 1)
Quarter: 2018Q1

REPORT INFORMATION
  Report Type: Spontaneous
  Country: US (occurrence: US)
  Receive Date: 20180309
  Receipt Date: 20180309
  Transmission Date: 20180509
  Serious: Yes (Life-Threatening, Hospitalization, Disabling, Other)
  Sender: FDA-Public Use
  Company Number: None

PATIENT
  Sex: Female
  Weight: 50.4 kg

DRUGS (3)
  1. TPN [Concomitant]
     Active Substance: AMINO ACIDS\DEXTROSE\ELECTROLYTES NOS\SOYBEAN OIL
  2. PROLIA [Suspect]
     Active Substance: DENOSUMAB
     Indication: OSTEOPOROSIS
     Dates: start: 20170614
  3. VITAMINS AND MINERAL [Concomitant]

REACTIONS (4)
  - Urinary tract infection [None]
  - Sepsis [None]
  - Escherichia infection [None]
  - Blood calcium decreased [None]
